FAERS Safety Report 7365163-7 (Version None)
Quarter: 2011Q1

REPORT INFORMATION
  Report Type: 
  Country: None (occurrence: None)
  Receive Date: 20110321
  Receipt Date: 20110315
  Transmission Date: 20110831
  Serious: Yes (Other)
  Sender: FDA-Public Use
  Company Number: US-RB-023972-11

PATIENT
  Sex: Male

DRUGS (2)
  1. SUBOXONE [Suspect]
     Indication: PRODUCT USED FOR UNKNOWN INDICATION
     Dosage: SUBLINGUAL FILM- DOSING INFORMATION UNKNOWN
     Route: 065
  2. MARIJUANA [Suspect]
     Indication: PRODUCT USED FOR UNKNOWN INDICATION
     Dosage: DOSING INFORMATION UNKNOWN
     Route: 065

REACTIONS (7)
  - LOSS OF CONSCIOUSNESS [None]
  - CONDITION AGGRAVATED [None]
  - FEAR [None]
  - SUBSTANCE ABUSE [None]
  - MEMORY IMPAIRMENT [None]
  - EMOTIONAL DISTRESS [None]
  - INTENTIONAL DRUG MISUSE [None]
